FAERS Safety Report 8153972-6 (Version None)
Quarter: 2012Q1

REPORT INFORMATION
  Report Type: 
  Country: None (occurrence: None)
  Receive Date: 20120221
  Receipt Date: 20120221
  Transmission Date: 20120608
  Serious: No
  Sender: FDA-Public Use
  Company Number: None

PATIENT
  Age: 0 Year
  Sex: Male
  Weight: 4.9895 kg

DRUGS (1)
  1. CYTOTEC [Suspect]

REACTIONS (5)
  - MATERNAL DRUGS AFFECTING FOETUS [None]
  - CONSTIPATION [None]
  - HYPERREFLEXIA [None]
  - JOINT LOCK [None]
  - FOETAL EXPOSURE DURING DELIVERY [None]
